FAERS Safety Report 5231292-7 (Version None)
Quarter: 2007Q1

REPORT INFORMATION
  Report Type: 
  Country: None (occurrence: None)
  Receive Date: 20070202
  Receipt Date: 20070122
  Transmission Date: 20070707
  Serious: Yes (Other)
  Sender: FDA-Public Use
  Company Number: TPA2006A02021

PATIENT
  Age: 64 Year
  Sex: Female
  Weight: 92.0802 kg

DRUGS (17)
  1. ACTOS [Suspect]
     Indication: BLOOD TRIGLYCERIDES INCREASED
     Dosage: 15 MG, 1 IN 1 D, PER ORAL; SEE IMAGE
     Route: 048
     Dates: start: 20061011, end: 20061025
  2. ACTOS [Suspect]
     Indication: DIABETES MELLITUS NON-INSULIN-DEPENDENT
     Dosage: 15 MG, 1 IN 1 D, PER ORAL; SEE IMAGE
     Route: 048
     Dates: start: 20061011, end: 20061025
  3. ACTOS [Suspect]
     Indication: METABOLIC SYNDROME
     Dosage: 15 MG, 1 IN 1 D, PER ORAL; SEE IMAGE
     Route: 048
     Dates: start: 20061011, end: 20061025
  4. ACTOS [Suspect]
     Indication: BLOOD TRIGLYCERIDES INCREASED
     Dosage: 15 MG, 1 IN 1 D, PER ORAL; SEE IMAGE
     Route: 048
     Dates: start: 20060927, end: 20061101
  5. ACTOS [Suspect]
     Indication: DIABETES MELLITUS NON-INSULIN-DEPENDENT
     Dosage: 15 MG, 1 IN 1 D, PER ORAL; SEE IMAGE
     Route: 048
     Dates: start: 20060927, end: 20061101
  6. ACTOS [Suspect]
     Indication: METABOLIC SYNDROME
     Dosage: 15 MG, 1 IN 1 D, PER ORAL; SEE IMAGE
     Route: 048
     Dates: start: 20060927, end: 20061101
  7. ACTOS [Suspect]
     Indication: BLOOD TRIGLYCERIDES INCREASED
     Dosage: 15 MG, 1 IN 1 D, PER ORAL; SEE IMAGE
     Route: 048
     Dates: start: 20061026, end: 20061107
  8. ACTOS [Suspect]
     Indication: DIABETES MELLITUS NON-INSULIN-DEPENDENT
     Dosage: 15 MG, 1 IN 1 D, PER ORAL; SEE IMAGE
     Route: 048
     Dates: start: 20061026, end: 20061107
  9. ACTOS [Suspect]
     Indication: METABOLIC SYNDROME
     Dosage: 15 MG, 1 IN 1 D, PER ORAL; SEE IMAGE
     Route: 048
     Dates: start: 20061026, end: 20061107
  10. ACTOS [Suspect]
     Indication: BLOOD TRIGLYCERIDES INCREASED
     Dosage: 15 MG, 1 IN 1 D, PER ORAL; SEE IMAGE
     Route: 048
     Dates: start: 20061108
  11. ACTOS [Suspect]
     Indication: DIABETES MELLITUS NON-INSULIN-DEPENDENT
     Dosage: 15 MG, 1 IN 1 D, PER ORAL; SEE IMAGE
     Route: 048
     Dates: start: 20061108
  12. ACTOS [Suspect]
     Indication: METABOLIC SYNDROME
     Dosage: 15 MG, 1 IN 1 D, PER ORAL; SEE IMAGE
     Route: 048
     Dates: start: 20061108
  13. METFORMIN HCL [Concomitant]
  14. AMARYL [Concomitant]
  15. NEXIUM [Concomitant]
  16. UREA CREAM 40% (UREA) (CREAM) [Concomitant]
  17. FLEXERIL [Concomitant]

REACTIONS (14)
  - BLINDNESS [None]
  - BLOOD GLUCOSE DECREASED [None]
  - BLOOD GLUCOSE FLUCTUATION [None]
  - CARDIAC FLUTTER [None]
  - DIZZINESS [None]
  - DYSGEUSIA [None]
  - EMOTIONAL DISORDER [None]
  - HEPATIC PAIN [None]
  - INCREASED APPETITE [None]
  - INSOMNIA [None]
  - NAUSEA [None]
  - RESPIRATORY RATE INCREASED [None]
  - THERAPEUTIC RESPONSE UNEXPECTED [None]
  - WEIGHT FLUCTUATION [None]
